FAERS Safety Report 7205012-0 (Version None)
Quarter: 2010Q4

REPORT INFORMATION
  Report Type: 
  Country: None (occurrence: None)
  Receive Date: 20101230
  Receipt Date: 20101228
  Transmission Date: 20110411
  Serious: Yes (Other)
  Sender: FDA-Public Use
  Company Number: US-AMGEN-USASP2010012098

PATIENT

DRUGS (3)
  1. NPLATE [Suspect]
     Indication: IDIOPATHIC THROMBOCYTOPENIC PURPURA
     Dates: start: 20100517, end: 20100825
  2. CORTICOSTEROIDS [Concomitant]
     Dosage: UNK
     Dates: start: 20100125
  3. DANAZOL [Concomitant]
     Dosage: UNK
     Dates: start: 20100405

REACTIONS (1)
  - EVANS SYNDROME [None]
